FAERS Safety Report 6166678-X (Version None)
Quarter: 2009Q2

REPORT INFORMATION
  Report Type: 
  Country: None (occurrence: None)
  Receive Date: 20090424
  Receipt Date: 20090409
  Transmission Date: 20091009
  Serious: No
  Sender: FDA-Public Use
  Company Number: US-ALEXION-A200900090

PATIENT
  Sex: Female

DRUGS (3)
  1. SOLIRIS [Suspect]
     Indication: PAROXYSMAL NOCTURNAL HAEMOGLOBINURIA
     Dosage: 600 MG, QWK
     Route: 042
     Dates: start: 20090108, end: 20090203
  2. SOLIRIS [Suspect]
     Dosage: 900 MG, SINGLE
     Route: 042
     Dates: start: 20090210, end: 20090210
  3. SOLIRIS [Suspect]
     Dosage: 600 MG, RE-INDUCTION
     Route: 042
     Dates: start: 20090326

REACTIONS (9)
  - ABORTION SPONTANEOUS [None]
  - DRUG DOSE OMISSION [None]
  - DRUG EXPOSURE DURING PREGNANCY [None]
  - PERIORBITAL HAEMATOMA [None]
  - PHYSICAL ASSAULT [None]
  - PREGNANCY [None]
  - SCLERAL HAEMORRHAGE [None]
  - VIRAL INFECTION [None]
  - VOMITING [None]
